FAERS Safety Report 7057201-6 (Version None)
Quarter: 2010Q4

REPORT INFORMATION
  Report Type: 
  Country: None (occurrence: None)
  Receive Date: 20101022
  Receipt Date: 20101013
  Transmission Date: 20110411
  Serious: Yes (Other)
  Sender: FDA-Public Use
  Company Number: US-US-EMD SERONO, INC.-231114J09USA

PATIENT
  Sex: Female
  Weight: 75 kg

DRUGS (3)
  1. REBIF [Suspect]
     Indication: MULTIPLE SCLEROSIS
     Route: 058
     Dates: start: 20020709
  2. LISINOPRIL [Concomitant]
     Indication: HYPERTENSION
  3. UNSPECIFIED MEDICATION [Concomitant]

REACTIONS (3)
  - COGNITIVE DISORDER [None]
  - MEMORY IMPAIRMENT [None]
  - TYPE 2 DIABETES MELLITUS [None]
